FAERS Safety Report 8219268-9 (Version None)
Quarter: 2012Q1

REPORT INFORMATION
  Report Type: 
  Country: None (occurrence: None)
  Receive Date: 20120319
  Receipt Date: 20120316
  Transmission Date: 20120608
  Serious: Yes (Hospitalization, Other)
  Sender: FDA-Public Use
  Company Number: US-BAYER-2012-026455

PATIENT
  Age: 54 Year
  Sex: Female

DRUGS (1)
  1. BETASERON [Suspect]
     Indication: SECONDARY PROGRESSIVE MULTIPLE SCLEROSIS
     Dosage: UNK
     Dates: start: 20030224, end: 20120301

REACTIONS (4)
  - INJECTION SITE NECROSIS [None]
  - INJECTION SITE ULCER [None]
  - INJECTION SITE SCAB [None]
  - BLADDER CANCER [None]
